FAERS Safety Report 9211003 (Version 1)
Quarter: 2013Q2

REPORT INFORMATION
  Report Type: Spontaneous
  Country: NL (occurrence: NL)
  Receive Date: 20130404
  Receipt Date: 20130404
  Transmission Date: 20140414
  Serious: Yes (Life-Threatening)
  Sender: FDA-Public Use
  Company Number: NL-MERCK-1303NLD013377

PATIENT
  Age: 36 Year
  Sex: Male
  Weight: 88 kg

DRUGS (3)
  1. PREGNYL [Suspect]
     Indication: HORMONE REPLACEMENT THERAPY
     Dosage: 2 TIMES PER1 WEEK 1 DF
     Dates: start: 20130210, end: 20130313
  2. HYDROCORTISONE SODIUM PHOSPHATE [Concomitant]
     Dosage: TIMES PER 1 DAYS 30 MG
     Route: 048
  3. EUTHYROX [Concomitant]
     Dosage: 1 TIMES PER 1 DAYS 100 MICROG
     Route: 048

REACTIONS (1)
  - Hypothalamic enlargement [Unknown]
